FAERS Safety Report 5254752-1 (Version None)
Quarter: 2007Q1

REPORT INFORMATION
  Report Type: 
  Country: None (occurrence: None)
  Receive Date: 20070228
  Receipt Date: 20070214
  Transmission Date: 20070707
  Serious: Yes (Other)
  Sender: FDA-Public Use
  Company Number: 2007SP003294

PATIENT
  Age: 49 Year
  Sex: Female

DRUGS (5)
  1. CLARITIN [Suspect]
     Indication: RHINORRHOEA
     Dosage: 1 DF; QD; PO
     Route: 048
     Dates: end: 20070212
  2. CLARITIN [Suspect]
     Indication: SINUS HEADACHE
     Dosage: 1 DF; QD; PO
     Route: 048
     Dates: end: 20070212
  3. SYNTHROID [Concomitant]
  4. DOXYCYCLINE [Concomitant]
  5. DETROL [Concomitant]

REACTIONS (6)
  - BLOOD PRESSURE INCREASED [None]
  - FATIGUE [None]
  - HEART RATE INCREASED [None]
  - HOT FLUSH [None]
  - IRRITABILITY [None]
  - LEUKOPENIA [None]
